FAERS Safety Report 21018447 (Version 1)
Quarter: 2022Q2

REPORT INFORMATION
  Report Type: Spontaneous
  Country: US (occurrence: US)
  Receive Date: 20220628
  Receipt Date: 20220628
  Transmission Date: 20220720
  Serious: No
  Sender: FDA-Public Use
  Company Number: US-MYLANLABS-2022M1045481

PATIENT
  Age: 73 Year
  Sex: Female
  Weight: 63.5 kg

DRUGS (1)
  1. WIXELA INHUB [Suspect]
     Active Substance: FLUTICASONE PROPIONATE\SALMETEROL XINAFOATE
     Indication: Asthma
     Dosage: 250/50 MCG, QD
     Route: 055
     Dates: start: 202201

REACTIONS (2)
  - Device mechanical issue [Unknown]
  - Incorrect dose administered [Unknown]

NARRATIVE: CASE EVENT DATE: 20220501
